FAERS Safety Report 24453368 (Version 2)
Quarter: 2024Q4

REPORT INFORMATION
  Report Type: Report from Study
  Country: US (occurrence: US)
  Receive Date: 20241017
  Receipt Date: 20241018
  Transmission Date: 20250114
  Serious: No
  Sender: ROCHE
  Company Number: US-ROCHE-3279391

PATIENT
  Age: 70 Year
  Sex: Female
  Weight: 48.08 kg

DRUGS (22)
  1. RITUXAN [Suspect]
     Active Substance: RITUXIMAB
     Indication: Neuromyelitis optica spectrum disorder
     Route: 042
     Dates: start: 202207
  2. RITUXAN [Suspect]
     Active Substance: RITUXIMAB
     Route: 042
  3. RITUXIMAB [Suspect]
     Active Substance: RITUXIMAB
     Indication: Neuromyelitis optica spectrum disorder
     Route: 065
  4. ENSPRYNG [Suspect]
     Active Substance: SATRALIZUMAB-MWGE
     Indication: Neuromyelitis optica spectrum disorder
     Dosage: INJECT 120MG SQ AT WEEKS 0, 2, AND 4
     Route: 058
     Dates: start: 20230224
  5. ENSPRYNG [Suspect]
     Active Substance: SATRALIZUMAB-MWGE
  6. ENSPRYNG [Suspect]
     Active Substance: SATRALIZUMAB-MWGE
  7. AMITRIPTYLINE [Concomitant]
     Active Substance: AMITRIPTYLINE
     Dosage: 0.5 TABLET BY MOUTH
     Route: 048
  8. ALPHA-D-GALACTOSIDASE [Concomitant]
     Route: 048
  9. BACLOFEN [Concomitant]
     Active Substance: BACLOFEN
     Route: 048
  10. BIFIDOBACTERIUM SPP. [Concomitant]
     Active Substance: BIFIDOBACTERIUM SPP.
     Route: 048
  11. CALCIUM CITRATE [Concomitant]
     Active Substance: CALCIUM CITRATE
     Route: 048
  12. CARBOXYMETHYLCELLULOSE;GLYCERIN [Concomitant]
  13. CHOLECALCIFEROL [Concomitant]
     Active Substance: CHOLECALCIFEROL
     Dosage: 1000 UNITS
     Route: 048
  14. BETAMETHASONE\CLOTRIMAZOLE [Concomitant]
     Active Substance: BETAMETHASONE\CLOTRIMAZOLE
  15. YUVAFEM [Concomitant]
     Active Substance: ESTRADIOL HEMIHYDRATE
     Dosage: TWICE WEEKLY.?10 MCG
     Route: 048
  16. GABAPENTIN [Concomitant]
     Active Substance: GABAPENTIN
  17. LEVOTHYROXINE [Concomitant]
     Active Substance: LEVOTHYROXINE
  18. KETOCONAZOLE [Concomitant]
     Active Substance: KETOCONAZOLE
  19. LINZESS [Concomitant]
     Active Substance: LINACLOTIDE
  20. OXYCODONE [Concomitant]
     Active Substance: OXYCODONE
  21. RISEDRONATE SODIUM [Concomitant]
     Active Substance: RISEDRONATE SODIUM
  22. SENNOSIDES [Concomitant]
     Active Substance: SENNOSIDES

REACTIONS (11)
  - Off label use [Unknown]
  - COVID-19 [Recovered/Resolved]
  - Dyspnoea [Unknown]
  - Pulmonary mass [Unknown]
  - Urinary tract infection [Unknown]
  - Hepatic function abnormal [Unknown]
  - Blood immunoglobulin G decreased [Unknown]
  - Protein total decreased [Unknown]
  - Wrong technique in product usage process [Unknown]
  - Accidental exposure to product [Unknown]
  - Memory impairment [Not Recovered/Not Resolved]
